FAERS Safety Report 8326511-4 (Version None)
Quarter: 2012Q2

REPORT INFORMATION
  Report Type: 
  Country: None (occurrence: None)
  Receive Date: 20120501
  Receipt Date: 20090730
  Transmission Date: 20120825
  Serious: No
  Sender: FDA-Public Use
  Company Number: US-TEVA-2009009067

PATIENT
  Sex: Female
  Weight: 96.702 kg

DRUGS (7)
  1. LEVORA 0.15/30-21 [Concomitant]
     Dates: start: 19840101
  2. MULTI-VITAMINS [Concomitant]
     Dates: start: 19990101
  3. CHOLEST-OFF [Concomitant]
     Dates: start: 20070101
  4. FLUOXETINE [Concomitant]
     Dates: start: 20070101
  5. LYSINE [Concomitant]
     Dates: start: 20040101
  6. NUVIGIL [Suspect]
     Indication: HYPERSOMNIA
     Dosage: 250 MILLIGRAM;
     Route: 048
     Dates: start: 20090727, end: 20090727
  7. CALCIUM W/MAGNESIUM/VITAMIN D [Concomitant]
     Dates: start: 20070101

REACTIONS (5)
  - DISTURBANCE IN ATTENTION [None]
  - FEELING ABNORMAL [None]
  - DRY MOUTH [None]
  - GLOSSODYNIA [None]
  - SWOLLEN TONGUE [None]
